FAERS Safety Report 7389754-2 (Version None)
Quarter: 2011Q1

REPORT INFORMATION
  Report Type: 
  Country: None (occurrence: None)
  Receive Date: 20110323
  Receipt Date: 20110315
  Transmission Date: 20110831
  Serious: Yes (Hospitalization, Other)
  Sender: FDA-Public Use
  Company Number: 2009SP023510

PATIENT
  Age: 37 Year
  Sex: Female
  Weight: 56.6996 kg

DRUGS (4)
  1. NUVARING [Suspect]
     Indication: CONTRACEPTION
     Dosage: 1 DF
     Dates: start: 20070101, end: 20070924
  2. NUVARING [Suspect]
     Indication: HORMONE LEVEL ABNORMAL
     Dosage: 1 DF
     Dates: start: 20070101, end: 20070924
  3. NUVARING [Suspect]
     Indication: CYST
     Dosage: 1 DF
     Dates: start: 20070101, end: 20070924
  4. NUVARING [Suspect]
     Indication: PROPHYLAXIS
     Dosage: 1 DF
     Dates: start: 20070101, end: 20070924

REACTIONS (7)
  - DEEP VEIN THROMBOSIS [None]
  - MENTAL DISORDER [None]
  - INFERTILITY FEMALE [None]
  - ABNORMAL WITHDRAWAL BLEEDING [None]
  - PELVIC PAIN [None]
  - CONSTIPATION [None]
  - CONDITION AGGRAVATED [None]
